FAERS Safety Report 11228717 (Version 1)
Quarter: 2015Q2

REPORT INFORMATION
  Report Type: Spontaneous
  Country: RU (occurrence: RU)
  Receive Date: 20150630
  Receipt Date: 20150630
  Transmission Date: 20150821
  Serious: Yes (Hospitalization)
  Sender: FDA-Public Use
  Company Number: RU-BAYER-2015-362690

PATIENT
  Age: 17 Year
  Sex: Male

DRUGS (3)
  1. AMBROBENE [Suspect]
     Active Substance: AMBROXOL HYDROCHLORIDE
  2. ANTIANGIN [Suspect]
     Active Substance: BISMUTH CAMPHOCARBONATE, D-
  3. ASPIRIN. [Suspect]
     Active Substance: ASPIRIN

REACTIONS (2)
  - Stevens-Johnson syndrome [Recovered/Resolved]
  - Hypersensitivity [None]
